FAERS Safety Report 16237333 (Version 2)
Quarter: 2019Q2

REPORT INFORMATION
  Report Type: Spontaneous
  Country: US (occurrence: US)
  Receive Date: 20190425
  Receipt Date: 20190503
  Transmission Date: 20190711
  Serious: Yes (Death, Hospitalization)
  Sender: FDA-Public Use
  Company Number: US-TEVA-2019-US-1041269

PATIENT
  Age: 57 Year
  Sex: Male

DRUGS (3)
  1. ENOXAPARIN SODIUM. [Suspect]
     Active Substance: ENOXAPARIN SODIUM
     Indication: ACUTE MYOCARDIAL INFARCTION
     Route: 065
  2. INSULIN [Concomitant]
     Active Substance: INSULIN NOS
     Indication: DIABETIC KETOACIDOSIS
     Route: 065
  3. MIDAZOLAM [Suspect]
     Active Substance: MIDAZOLAM HYDROCHLORIDE
     Indication: AGITATION
     Route: 065

REACTIONS (7)
  - Subdural haemorrhage [Fatal]
  - Brain herniation [Fatal]
  - Sinus bradycardia [Recovering/Resolving]
  - Intracranial pressure increased [Fatal]
  - Respiratory depression [Fatal]
  - Agitation [Recovering/Resolving]
  - Symptom masked [Unknown]
